FAERS Safety Report 9221220 (Version 6)
Quarter: 2014Q1

REPORT INFORMATION
  Report Type: Spontaneous
  Country: US (occurrence: US)
  Receive Date: 20130410
  Receipt Date: 20140320
  Transmission Date: 20141002
  Serious: Yes (Hospitalization, Other)
  Sender: FDA-Public Use
  Company Number: US-009507513-1304USA003538

PATIENT
  Age: 52 Year
  Sex: Male

DRUGS (12)
  1. PEGINTRON [Suspect]
     Indication: HEPATITIS C
     Dosage: UNK UNK, Q7 DAYS
     Dates: start: 20130405
  2. PEGINTRON [Suspect]
     Dosage: DOSE: 120 MCG, Q7 DAYS
     Dates: end: 201305
  3. PEGINTRON [Suspect]
     Dosage: DOSE: 90 MCG, Q7 DAYS
     Dates: start: 201305
  4. PEGINTRON [Suspect]
     Dosage: UNK, Q7 DAYS
     Dates: start: 2013, end: 20131201
  5. VICTRELIS [Suspect]
     Indication: HEPATITIS C
     Dosage: DAILY
     Route: 048
     Dates: start: 20130513, end: 20131201
  6. RIBAPAK [Suspect]
     Indication: HEPATITIS C
     Dosage: 2 PILL, QD
     Route: 048
     Dates: start: 20130405
  7. RIBAPAK [Suspect]
     Dosage: 1 PILL, QD
     Route: 048
  8. RIBAPAK [Suspect]
     Dosage: DOSE: 1200 MG
     Route: 048
     Dates: end: 201305
  9. RIBAPAK [Suspect]
     Dosage: DOSE: 400 MG
     Route: 048
     Dates: start: 201305
  10. RIBAPAK [Suspect]
     Dosage: 1200 MG, BID
     Route: 048
     Dates: start: 2013, end: 20131201
  11. HYDROCHLOROTHIAZIDE (+) LISINOPRIL [Concomitant]
  12. INSULIN [Concomitant]
     Indication: GLUCOSE TOLERANCE IMPAIRED

REACTIONS (39)
  - Blood glucose increased [Unknown]
  - Hyperglycaemia [Unknown]
  - Hyperglycaemia [Unknown]
  - Hypertension [Unknown]
  - Hallucination [Unknown]
  - Hallucination [Unknown]
  - Heart rate increased [Unknown]
  - Tachycardia [Unknown]
  - Heart rate increased [Unknown]
  - Tachycardia [Unknown]
  - Insomnia [Unknown]
  - Epistaxis [Unknown]
  - Headache [Unknown]
  - Headache [Unknown]
  - Fatigue [Unknown]
  - Fatigue [Unknown]
  - Injection site reaction [Unknown]
  - Gait disturbance [Unknown]
  - Memory impairment [Unknown]
  - Mental disorder [Unknown]
  - Somnolence [Unknown]
  - Decreased appetite [Unknown]
  - Hypotension [Unknown]
  - Abdominal distension [Unknown]
  - Oedema [Unknown]
  - Abdominal pain [Unknown]
  - Speech disorder [Unknown]
  - Local swelling [Unknown]
  - Local swelling [Unknown]
  - Abdominal distension [Unknown]
  - Renal disorder [Unknown]
  - Liver disorder [Unknown]
  - Pancreatic disorder [Unknown]
  - Cataract [Unknown]
  - Blood disorder [Unknown]
  - Memory impairment [Unknown]
  - Gait disturbance [Unknown]
  - Platelet count abnormal [Unknown]
  - Lymphatic disorder [Unknown]
